FAERS Safety Report 12083075 (Version 2)
Quarter: 2016Q1

REPORT INFORMATION
  Report Type: Spontaneous
  Country: US (occurrence: US)
  Receive Date: 20160217
  Receipt Date: 20160301
  Transmission Date: 20160526
  Serious: Yes (Hospitalization)
  Sender: FDA-Public Use
  Company Number: US-PFIZER INC-2016015635

PATIENT
  Age: 73 Year
  Sex: Female

DRUGS (2)
  1. INLYTA [Suspect]
     Active Substance: AXITINIB
     Indication: RENAL CANCER
     Dosage: 5 MG, 1X/DAY
     Dates: start: 201505
  2. INLYTA [Suspect]
     Active Substance: AXITINIB
     Dosage: 10 MG, UNK
     Dates: start: 201505

REACTIONS (1)
  - Diarrhoea [Recovered/Resolved]
